FAERS Safety Report 8373493-5 (Version None)
Quarter: 2012Q2

REPORT INFORMATION
  Report Type: 
  Country: None (occurrence: None)
  Receive Date: 20120521
  Receipt Date: 20110629
  Transmission Date: 20120825
  Serious: Yes (Hospitalization)
  Sender: FDA-Public Use
  Company Number: US-TEVA-2011003444

PATIENT
  Age: 72 Year
  Sex: Female

DRUGS (3)
  1. ACYCLOVIR [Concomitant]
  2. TREANDA [Suspect]
     Indication: CHRONIC LYMPHOCYTIC LEUKAEMIA
     Route: 042
  3. ALLOPURINOL [Concomitant]

REACTIONS (2)
  - URINARY TRACT INFECTION [None]
  - RASH GENERALISED [None]
